FAERS Safety Report 22246350 (Version 1)
Quarter: 2023Q2

REPORT INFORMATION
  Report Type: Spontaneous
  Country: IN (occurrence: IN)
  Receive Date: 20230424
  Receipt Date: 20230424
  Transmission Date: 20230722
  Serious: Yes (Other)
  Sender: FDA-Public Use
  Company Number: IN-PFIZER INC-PV202300071781

PATIENT
  Age: 40 Year
  Sex: Female

DRUGS (2)
  1. CRIZOTINIB [Suspect]
     Active Substance: CRIZOTINIB
     Indication: Non-small cell lung cancer
     Dosage: 250 UNK, 2X/DAY
     Route: 048
     Dates: start: 20221102
  2. CRIZOTINIB [Suspect]
     Active Substance: CRIZOTINIB
     Indication: ALK gene rearrangement positive

REACTIONS (2)
  - Empyema [Unknown]
  - Pyrexia [Unknown]

NARRATIVE: CASE EVENT DATE: 20221101
